FAERS Safety Report 4617776-0 (Version None)
Quarter: 2005Q1

REPORT INFORMATION
  Report Type: 
  Country: None (occurrence: None)
  Receive Date: 20050324
  Receipt Date: 20050310
  Transmission Date: 20050727
  Serious: Yes (Hospitalization)
  Sender: FDA-Public Use
  Company Number: US-GLAXOSMITHKLINE-A0549203A

PATIENT
  Age: 76 Year
  Sex: Female
  Weight: 41 kg

DRUGS (6)
  1. SENSODYNE ORIGINAL FLAVOR TOOTHPASTE [Suspect]
     Indication: SENSITIVITY OF TEETH
     Dates: start: 19850101
  2. CALCIUM GLUCONATE [Concomitant]
  3. VITAMIN E [Concomitant]
  4. VITAMIN C [Concomitant]
  5. CARDIZEM [Concomitant]
     Route: 048
  6. TYLENOL EX [Concomitant]
     Indication: BACK PAIN
     Route: 048

REACTIONS (1)
  - ARTHRALGIA [None]
